FAERS Safety Report 9827102 (Version 1)
Quarter: 2014Q1

REPORT INFORMATION
  Report Type: Spontaneous
  Country: US (occurrence: US)
  Receive Date: 20140117
  Receipt Date: 20140117
  Transmission Date: 20141002
  Serious: No
  Sender: FDA-Public Use
  Company Number: US-GLAXOSMITHKLINE-A1036128A

PATIENT
  Sex: Male

DRUGS (2)
  1. PROMACTA [Suspect]
     Indication: APLASTIC ANAEMIA
     Dosage: 75MG PER DAY
     Route: 048
  2. ANTIBIOTICS [Concomitant]

REACTIONS (6)
  - Diarrhoea [Unknown]
  - Enuresis [Unknown]
  - Frequent bowel movements [Unknown]
  - Flatulence [Unknown]
  - Blood disorder [Unknown]
  - Platelet disorder [Unknown]
